FAERS Safety Report 4675574-6 (Version None)
Quarter: 2005Q2

REPORT INFORMATION
  Report Type: 
  Country: None (occurrence: None)
  Receive Date: 20050527
  Receipt Date: 20050415
  Transmission Date: 20051028
  Serious: No
  Sender: FDA-Public Use
  Company Number: US-BRISTOL-MYERS SQUIBB COMPANY-12936720

PATIENT

DRUGS (1)
  1. ABILIFY [Suspect]
     Dosage: DOSES OF 5 OR 10 MG/DAY

REACTIONS (4)
  - DISTURBANCE IN SOCIAL BEHAVIOUR [None]
  - MENTAL DISORDER [None]
  - SCHIZOPHRENIA [None]
  - SPEECH DISORDER [None]
